FAERS Safety Report 6135046-9 (Version None)
Quarter: 2009Q1

REPORT INFORMATION
  Report Type: 
  Country: None (occurrence: None)
  Receive Date: 20090327
  Receipt Date: 20090302
  Transmission Date: 20090719
  Serious: Yes (Hospitalization)
  Sender: FDA-Public Use
  Company Number: DE-EISAI MEDIAL RESEARCH-E7273-00055-SPO-DE

PATIENT
  Sex: Male

DRUGS (7)
  1. TARGRETIN [Suspect]
     Indication: MYCOSIS FUNGOIDES
     Route: 048
     Dates: start: 20090131
  2. FALITHROM [Interacting]
     Indication: MYCOSIS FUNGOIDES
     Route: 065
  3. FENOFIBRATE [Suspect]
     Indication: MYCOSIS FUNGOIDES
     Route: 065
     Dates: start: 20090124, end: 20090226
  4. LEVOTHYROXINE [Concomitant]
     Indication: MYCOSIS FUNGOIDES
     Route: 048
     Dates: start: 20090131
  5. DELIX [Concomitant]
     Indication: ATRIAL FIBRILLATION
     Route: 065
  6. NORVASC [Concomitant]
     Route: 065
  7. NEBILET [Concomitant]
     Route: 065

REACTIONS (2)
  - DRUG INTERACTION [None]
  - INTERNATIONAL NORMALISED RATIO INCREASED [None]
